FAERS Safety Report 25996735 (Version 2)
Quarter: 2025Q4

REPORT INFORMATION
  Report Type: Spontaneous
  Country: EU (occurrence: EU)
  Receive Date: 20251104
  Receipt Date: 20251117
  Transmission Date: 20260117
  Serious: Yes (Hospitalization, Other)
  Sender: ABBVIE
  Company Number: EU-ABBVIE-6525598

PATIENT
  Age: 64 Year
  Sex: Female

DRUGS (1)
  1. SKYRIZI [Suspect]
     Active Substance: RISANKIZUMAB-RZAA
     Indication: Psoriasis
     Route: 058
     Dates: start: 202408, end: 202506

REACTIONS (1)
  - Autoimmune haemolytic anaemia [Unknown]

NARRATIVE: CASE EVENT DATE: 20250501
